FAERS Safety Report 24077455 (Version 1)
Quarter: 2024Q3

REPORT INFORMATION
  Report Type: Spontaneous
  Country: JP (occurrence: JP)
  Receive Date: 20240711
  Receipt Date: 20240711
  Transmission Date: 20241017
  Serious: No
  Sender: PIERRE FABRE MEDICAMENT
  Company Number: JP-PFM-2023-03477

PATIENT
  Age: 2 Month
  Sex: Female

DRUGS (5)
  1. PROPRANOLOL HYDROCHLORIDE [Suspect]
     Active Substance: PROPRANOLOL HYDROCHLORIDE
     Indication: Infantile haemangioma
     Dosage: 0.5 MG/KG/ DAY
     Route: 048
     Dates: start: 20200203, end: 20200203
  2. PROPRANOLOL HYDROCHLORIDE [Suspect]
     Active Substance: PROPRANOLOL HYDROCHLORIDE
     Dosage: 0.5 MG/KG/ DAY
     Route: 048
     Dates: start: 20200204, end: 20200204
  3. PROPRANOLOL HYDROCHLORIDE [Suspect]
     Active Substance: PROPRANOLOL HYDROCHLORIDE
     Dosage: 0.3 MG/KG/12 HOURS
     Route: 048
     Dates: start: 20200205, end: 20200205
  4. PROPRANOLOL HYDROCHLORIDE [Suspect]
     Active Substance: PROPRANOLOL HYDROCHLORIDE
     Dosage: 0.4 MG/KG/ DAY
     Route: 048
     Dates: start: 20200206, end: 20200206
  5. PROPRANOLOL HYDROCHLORIDE [Suspect]
     Active Substance: PROPRANOLOL HYDROCHLORIDE
     Dosage: 0.3 MG/KG/ DAY
     Route: 048
     Dates: start: 20200207, end: 20201207

REACTIONS (3)
  - Bradycardia [Recovered/Resolved]
  - Inappropriate schedule of product administration [Unknown]
  - Off label use [Unknown]

NARRATIVE: CASE EVENT DATE: 20200204
